FAERS Safety Report 17778805 (Version 2)
Quarter: 2020Q3

REPORT INFORMATION
  Report Type: Spontaneous
  Country: US (occurrence: US)
  Receive Date: 20200513
  Receipt Date: 20200930
  Transmission Date: 20201102
  Serious: No
  Sender: FDA-Public Use
  Company Number: US-PFIZER INC-2020139099

PATIENT
  Age: 51 Year
  Sex: Female

DRUGS (1)
  1. XELJANZ XR [Suspect]
     Active Substance: TOFACITINIB CITRATE
     Dosage: 11 MG, UNK
     Dates: start: 20190926

REACTIONS (4)
  - Peripheral swelling [Recovering/Resolving]
  - Condition aggravated [Recovered/Resolved]
  - Intentional product misuse [Unknown]
  - Fatigue [Unknown]
